FAERS Safety Report 12625362 (Version 2)
Quarter: 2017Q1

REPORT INFORMATION
  Report Type: Spontaneous
  Country: US (occurrence: US)
  Receive Date: 20160805
  Receipt Date: 20170106
  Transmission Date: 20170428
  Serious: Yes (Other)
  Sender: FDA-Public Use
  Company Number: US-VIFOR (INTERNATIONAL) INC.-VIT-2016-03374

PATIENT
  Sex: Male
  Weight: 90.8 kg

DRUGS (4)
  1. VELPHORO [Suspect]
     Active Substance: FERRIC OXYHYDROXIDE
     Dosage: WITH SNACK
     Route: 048
  2. VELPHORO [Suspect]
     Active Substance: FERRIC OXYHYDROXIDE
     Dosage: WITH MEALS
     Route: 048
  3. RENVELA [Concomitant]
     Active Substance: SEVELAMER CARBONATE
  4. VELPHORO [Suspect]
     Active Substance: FERRIC OXYHYDROXIDE
     Indication: PRODUCT USED FOR UNKNOWN INDICATION
     Dosage: WITH MEALS
     Route: 048
     Dates: start: 20140902

REACTIONS (5)
  - Diarrhoea [Unknown]
  - Vomiting [Recovered/Resolved]
  - Weight decreased [Recovering/Resolving]
  - Nausea [Recovered/Resolved]
  - Overdose [Unknown]
